FAERS Safety Report 5489458-7 (Version None)
Quarter: 2007Q4

REPORT INFORMATION
  Report Type: 
  Country: None (occurrence: None)
  Receive Date: 20071018
  Receipt Date: 20071010
  Transmission Date: 20080405
  Serious: Yes (Disabling, Other)
  Sender: FDA-Public Use
  Company Number: US-ELI_LILLY_AND_COMPANY-US_0402100599

PATIENT
  Sex: Female
  Weight: 91.818 kg

DRUGS (15)
  1. SOMATROPIN [Suspect]
     Indication: GROWTH HORMONE DEFICIENCY
     Dosage: UNK, UNKNOWN
     Dates: start: 19970624
  2. LEVOTHYROXINE SODIUM [Concomitant]
     Indication: HYPOTHYROIDISM
     Dosage: UNK, UNKNOWN
     Dates: start: 19921001
  3. HYDROCORTISONE [Concomitant]
     Indication: ADRENAL INSUFFICIENCY
     Dosage: UNK, UNKNOWN
     Dates: start: 19921001
  4. DDAVP (NEEDS NO REFRIGERATION) [Concomitant]
     Indication: DIABETES INSIPIDUS
     Dosage: UNK, UNKNOWN
     Dates: start: 19921001
  5. PREMARIN [Concomitant]
     Indication: HYPOGONADISM
     Dosage: UNK, UNKNOWN
     Dates: start: 19730101
  6. HYDROXYUREA [Concomitant]
  7. CORTEF [Concomitant]
  8. ACCUPRIL [Concomitant]
  9. LOPID [Concomitant]
  10. ALLOPURINOL [Concomitant]
  11. HYDROCHLOROTHIAZIDE [Concomitant]
  12. PRILOSEC [Concomitant]
  13. LASIX [Concomitant]
  14. ASPIRIN [Concomitant]
  15. COZAAR [Concomitant]

REACTIONS (1)
  - CHRONIC MYELOID LEUKAEMIA [None]
